FAERS Safety Report 6460036-6 (Version None)
Quarter: 2009Q4

REPORT INFORMATION
  Report Type: 
  Country: None (occurrence: None)
  Receive Date: 20091129
  Receipt Date: 20091118
  Transmission Date: 20100525
  Serious: Yes (Other)
  Sender: FDA-Public Use
  Company Number: PHBS2007JP19183

PATIENT
  Sex: Female
  Weight: 73 kg

DRUGS (6)
  1. ZOMETA [Suspect]
     Indication: METASTASES TO BONE
     Dosage: 4 MG, UNK
     Route: 042
     Dates: start: 20061101, end: 20070901
  2. AREDIA [Suspect]
     Indication: METASTASES TO BONE
     Dosage: 90 MG, UNK
     Route: 042
     Dates: start: 20030701, end: 20061001
  3. BISPHONAL [Suspect]
     Indication: METASTASES TO BONE
     Dates: start: 20020901, end: 20031201
  4. HERCEPTIN [Concomitant]
     Indication: BREAST CANCER METASTATIC
     Dates: start: 20070401
  5. XELODA [Concomitant]
  6. PREDONINE [Concomitant]

REACTIONS (8)
  - BONE DISORDER [None]
  - GINGIVITIS [None]
  - METASTASES TO CENTRAL NERVOUS SYSTEM [None]
  - METASTASES TO LIVER [None]
  - ORAL DISCOMFORT [None]
  - ORAL SURGERY [None]
  - OSTEONECROSIS [None]
  - PARAESTHESIA ORAL [None]
